FAERS Safety Report 8733466 (Version 2)
Quarter: 2012Q4

REPORT INFORMATION
  Report Type: Spontaneous
  Country: US (occurrence: None)
  Receive Date: 20120802
  Receipt Date: 20120824
  Transmission Date: 20130627
  Serious: Yes (Other)
  Sender: FDA-Public Use
  Company Number: 1206-295

PATIENT
  Age: 80 Year
  Sex: Female

DRUGS (20)
  1. EYLEA [Suspect]
     Indication: AGE-RELATED MACULAR DEGENERATION
     Dates: start: 20120605
  2. PRESERVISION (PRESERVISION LUTEIN EYE VIAT.+MIN.SUP.SOFTG.) [Concomitant]
  3. MIRTAZAPINE [Concomitant]
  4. GABAPENTIN [Concomitant]
  5. ADVAIR HFA [Concomitant]
  6. FLUTICASONE PROPIONATE [Concomitant]
  7. NAPROSYN [Concomitant]
  8. VITAMIN D3 [Concomitant]
  9. CLONAZEPINE (CLONAZEPAM) (TABLET) [Concomitant]
  10. CETRIZINE (CETIRIZINE HYDROCHLORIDE) [Concomitant]
  11. MACROBID (NITROFURANTOIN) (CAPSULE) [Concomitant]
  12. ALBUTEROL (SALBUTAMOL) (NEBULISER SOLUTION) [Concomitant]
  13. BUDESONIDE (BUDESONIDE) (NEBULISER SOLUTION) [Concomitant]
  14. PREDNISONE (PREDNISONE) (TABLET) [Concomitant]
  15. PERCOCET (TYLOX /00446701/) (TABLET) [Concomitant]
  16. PROAIR HFA (SALBUTAMOL SULFATE) (INHALANT) [Concomitant]
  17. DALMANE (FLURAZEPAM HYDROCHLORIDE) (CAPSULE) [Concomitant]
  18. ASTELIN (AZELASTINE HYDROCHLORIDE) (SOLUTION) [Concomitant]
  19. ACETAMINOPHEN (PARACETAMOL) (CAPSULES) [Concomitant]
  20. KLONOPIN (CLONAZEPAM) (TABLET) [Concomitant]

REACTIONS (3)
  - Blindness unilateral [None]
  - Transient ischaemic attack [None]
  - Eye disorder [None]
